FAERS Safety Report 15849147 (Version 2)
Quarter: 2019Q1

REPORT INFORMATION
  Report Type: Spontaneous
  Country: US (occurrence: US)
  Receive Date: 20190121
  Receipt Date: 20190129
  Transmission Date: 20190417
  Serious: No
  Sender: FDA-Public Use
  Company Number: US-PFIZER INC-2019027520

PATIENT
  Age: 87 Year

DRUGS (2)
  1. TIKOSYN [Suspect]
     Active Substance: DOFETILIDE
     Dosage: 250 UG, 2X/DAY (TAKE ONE CAPSULE (250 MCG TOTAL) BY MOUTH EVERY 12 (TWELVE) HOURS)
     Route: 048
     Dates: start: 20190117
  2. TIKOSYN [Suspect]
     Active Substance: DOFETILIDE
     Indication: ATRIAL FIBRILLATION
     Dosage: 250 UG, 2X/DAY []TAKE 2 CAPSULES (500 MCG TOTAL) BY MOUTH EVERY TWELVE HOURS)
     Route: 048

REACTIONS (1)
  - Drug ineffective for unapproved indication [Unknown]
